FAERS Safety Report 7040661-4 (Version None)
Quarter: 2010Q4

REPORT INFORMATION
  Report Type: 
  Country: None (occurrence: None)
  Receive Date: 20101013
  Receipt Date: 20101005
  Transmission Date: 20110411
  Serious: Yes (Hospitalization)
  Sender: FDA-Public Use
  Company Number: US-AMGEN-TCS435317

PATIENT
  Sex: Male
  Weight: 72.4 kg

DRUGS (7)
  1. ENBREL [Suspect]
     Indication: PSORIATIC ARTHROPATHY
     Route: 058
     Dates: start: 20071204
  2. DILANTIN [Concomitant]
  3. ASPIRIN [Concomitant]
  4. ATENOLOL [Concomitant]
  5. LIPITOR [Concomitant]
  6. DOVONEX [Concomitant]
  7. PLAVIX [Concomitant]

REACTIONS (5)
  - ANGINA PECTORIS [None]
  - CAROTID ARTERY STENT INSERTION [None]
  - DRUG LEVEL INCREASED [None]
  - HYPERTENSION [None]
  - MEMORY IMPAIRMENT [None]
